FAERS Safety Report 8871568 (Version 1)
Quarter: 2012Q4

REPORT INFORMATION
  Report Type: 
  Country: US (occurrence: US)
  Receive Date: 20121026
  Receipt Date: 20121026
  Transmission Date: 20130627
  Serious: No
  Sender: FDA-Public Use
  Company Number: US-AMGEN-USASP2012048424

PATIENT
  Age: 56 Year
  Sex: Female

DRUGS (2)
  1. ENBREL [Suspect]
     Indication: RHEUMATOID ARTHRITIS
     Dosage: 50 mg, qwk
     Dates: start: 20080101
  2. ENBREL [Suspect]
     Indication: FIBROMYALGIA

REACTIONS (5)
  - Pain [Not Recovered/Not Resolved]
  - Rotator cuff repair [Recovered/Resolved]
  - Exostosis [Recovered/Resolved]
  - Vitamin D decreased [Not Recovered/Not Resolved]
  - Arthritis [Recovered/Resolved]
